FAERS Safety Report 19912752 (Version 1)
Quarter: 2021Q4

REPORT INFORMATION
  Report Type: Spontaneous
  Country: US (occurrence: US)
  Receive Date: 20211004
  Receipt Date: 20211004
  Transmission Date: 20220303
  Serious: Yes (Other)
  Sender: FDA-Public Use
  Company Number: US-SANOFI-00788470

PATIENT
  Sex: Female

DRUGS (1)
  1. DULCOLAX LIQUID (MAGNESIUM HYDROXIDE) [Suspect]
     Active Substance: MAGNESIUM HYDROXIDE
     Dosage: 60 ML, QD(STRENGTH : 1200MG/15ML )

REACTIONS (1)
  - Haemorrhage [Unknown]
